FAERS Safety Report 9163599 (Version 2)
Quarter: 2013Q1

REPORT INFORMATION
  Report Type: Spontaneous
  Country: AU (occurrence: AU)
  Receive Date: 20130314
  Receipt Date: 20130325
  Transmission Date: 20140127
  Serious: Yes (Hospitalization, Other)
  Sender: FDA-Public Use
  Company Number: PHHY2013AU024892

PATIENT
  Age: 81 Year
  Sex: Female
  Weight: 85 kg

DRUGS (27)
  1. ACLASTA [Suspect]
     Dosage: 5MG/100ML
     Route: 042
     Dates: start: 20100222
  2. ACLASTA [Suspect]
     Dosage: 5MG/100ML
     Route: 042
     Dates: start: 20110305
  3. ACLASTA [Suspect]
     Dosage: 5MG/100ML
     Route: 042
     Dates: start: 20120203
  4. ACTILAX [Concomitant]
     Dosage: 30 ML, TID
  5. AXIT [Concomitant]
     Dosage: 1 DF, EACH NIGHT
  6. COPLAVIX [Concomitant]
     Dosage: 1 DF, UNK
  7. DIAFORMIN [Concomitant]
     Dosage: 1 DF, BID
  8. DITROPAN [Concomitant]
     Dosage: 1 DF, BID
  9. DURIDE [Concomitant]
     Dosage: 1 DF, UNK
  10. EPILIM [Concomitant]
     Dosage: 6 DF, (2 IN MORNING, 2 IN LUNCH AND 2 AT NIGHT)
  11. GLUCAGEN HYPOKIT [Concomitant]
     Dosage: 1 DF, UNK
  12. HUMALOG MIX [Concomitant]
     Dosage: 10 U, MANE
  13. IKOREL [Concomitant]
     Dosage: 1 DF, BID
  14. KARVEZIDE [Concomitant]
     Dosage: 1 DF, EACH MORNING
  15. LASIX [Concomitant]
     Dosage: 1 DF, BID
  16. LIPITOR [Concomitant]
     Dosage: 1 DF, UNK
  17. LYRICA [Concomitant]
     Dosage: 1 DF, BID
  18. METOHEXAL [Concomitant]
     Dosage: 0.5 DF, BID
  19. NITROLINGUAL-PUMPSPRAY [Concomitant]
     Dosage: 1 DF, UNK
  20. OSTELIN VITAMIN D [Concomitant]
     Dosage: 1 DF, UNK
  21. OXYCONTIN [Concomitant]
     Dosage: 10 MG, (AR LUCHTIME)
  22. OXYCONTIN [Concomitant]
     Dosage: 20 MG, BID
  23. PANADOL OSTEO [Concomitant]
     Dosage: 2 DF, (6-8 HOURLY) MAX 06 TAB/24HRS; DO NOT CRUSH
  24. PARIET [Concomitant]
     Dosage: 1 DF, BID
  25. PLAQUENIL [Concomitant]
     Dosage: 1 DF, UNK
  26. SIFROL [Concomitant]
     Dosage: 1 DF, EACH NIGHT
  27. ZANIDIP [Concomitant]
     Dosage: 1 DF, EACH NIGHT

REACTIONS (2)
  - Delirium [Recovering/Resolving]
  - Urinary tract infection [Recovering/Resolving]
